FAERS Safety Report 11057930 (Version 2)
Quarter: 2015Q2

REPORT INFORMATION
  Report Type: Spontaneous
  Country: US (occurrence: US)
  Receive Date: 20150423
  Receipt Date: 20150430
  Transmission Date: 20150821
  Serious: Yes (Other)
  Sender: FDA-Public Use
  Company Number: US-AUROBINDO-AUR-APL-2015-03408

PATIENT
  Age: 36 Year
  Sex: Female
  Weight: 79.37 kg

DRUGS (4)
  1. GABAPENTIN CAPSULES [Suspect]
     Active Substance: GABAPENTIN
     Dosage: 300 MG, UNK
     Route: 065
     Dates: start: 20150413
  2. GABAPENTIN CAPSULES [Suspect]
     Active Substance: GABAPENTIN
     Dosage: 200 MG, TWO TIMES A DAY
     Route: 065
  3. GABAPENTIN CAPSULES [Suspect]
     Active Substance: GABAPENTIN
     Dosage: 100 MG, ONCE A DAY
     Route: 065
  4. GABAPENTIN CAPSULES [Suspect]
     Active Substance: GABAPENTIN
     Indication: FIBROMYALGIA
     Dosage: 300 MG, ONCE A DAY
     Route: 065
     Dates: start: 20150315

REACTIONS (4)
  - Migraine [Recovered/Resolved]
  - Impaired driving ability [Recovered/Resolved]
  - Feeling drunk [Recovered/Resolved]
  - Photophobia [Recovered/Resolved]

NARRATIVE: CASE EVENT DATE: 20150315
